FAERS Safety Report 5273843-2 (Version None)
Quarter: 2007Q1

REPORT INFORMATION
  Report Type: 
  Country: None (occurrence: None)
  Receive Date: 20070323
  Receipt Date: 20070308
  Transmission Date: 20070707
  Serious: Yes (Hospitalization)
  Sender: FDA-Public Use
  Company Number: GBWYE942208MAR07

PATIENT
  Weight: 39 kg

DRUGS (9)
  1. ENBREL [Suspect]
     Indication: JUVENILE ARTHRITIS
     Route: 058
     Dates: start: 20010907, end: 20030901
  2. PHENYTOIN [Concomitant]
     Route: 048
     Dates: start: 20030901
  3. ACETAMINOPHEN [Concomitant]
     Dosage: DOSAGE UNKNOWN, TAKEN AS REQUIRED
     Route: 048
     Dates: start: 19850101
  4. IRON [Concomitant]
     Route: 048
     Dates: end: 20030701
  5. INDOMETHACIN [Concomitant]
     Dosage: 15MG TWICE DAILY PLUS 25MG SUSTAINED RELEASE NOCTE
     Route: 048
     Dates: start: 19951101
  6. CALCICHEW-D3 [Concomitant]
     Route: 048
     Dates: start: 19950801
  7. PREDNISOLONE [Concomitant]
     Route: 048
     Dates: start: 20030701
  8. PREDNISOLONE [Concomitant]
     Route: 048
     Dates: start: 20030901
  9. METRONIDAZOLE [Concomitant]
     Route: 048
     Dates: start: 20030901

REACTIONS (1)
  - JOINT DISLOCATION [None]
